FAERS Safety Report 5939165-9 (Version None)
Quarter: 2008Q4

REPORT INFORMATION
  Report Type: 
  Country: None (occurrence: None)
  Receive Date: 20081103
  Receipt Date: 20081022
  Transmission Date: 20090506
  Serious: Yes (Other)
  Sender: FDA-Public Use
  Company Number: DE-PFIZER INC-2008071962

PATIENT
  Sex: Male
  Weight: 70 kg

DRUGS (3)
  1. SORTIS [Suspect]
     Indication: LIPID METABOLISM DISORDER
     Route: 048
     Dates: start: 20040501, end: 20080901
  2. MICARDIS [Concomitant]
     Indication: HYPERTENSION
     Route: 048
  3. ALL OTHER THERAPEUTIC PRODUCTS [Concomitant]

REACTIONS (4)
  - ANAEMIA [None]
  - BONE MARROW FAILURE [None]
  - PLATELET COUNT DECREASED [None]
  - WHITE BLOOD CELL COUNT DECREASED [None]
